FAERS Safety Report 8014292-3 (Version None)
Quarter: 2011Q4

REPORT INFORMATION
  Report Type: 
  Country: None (occurrence: None)
  Receive Date: 20111229
  Receipt Date: 20111220
  Transmission Date: 20120403
  Serious: Yes (Other)
  Sender: FDA-Public Use
  Company Number: CN-GLAXOSMITHKLINE-B0772013A

PATIENT
  Age: 43 Year
  Sex: Female

DRUGS (2)
  1. ALPRAZOLAM [Concomitant]
     Indication: ANXIETY
     Dosage: .8MG PER DAY
     Route: 048
  2. PAROXETINE [Suspect]
     Indication: ANXIETY
     Dosage: 40MG PER DAY
     Route: 048

REACTIONS (4)
  - ILL-DEFINED DISORDER [None]
  - PROTRUSION TONGUE [None]
  - EXTRAPYRAMIDAL DISORDER [None]
  - MUSCULOSKELETAL STIFFNESS [None]
